FAERS Safety Report 4910835-4 (Version None)
Quarter: 2006Q1

REPORT INFORMATION
  Report Type: 
  Country: None (occurrence: None)
  Receive Date: 20060214
  Receipt Date: 20060208
  Transmission Date: 20060701
  Serious: Yes (Other)
  Sender: FDA-Public Use
  Company Number: US-GLAXOSMITHKLINE-A0593519A

PATIENT
  Sex: Male
  Weight: 1.8 kg

DRUGS (9)
  1. SUMATRIPTAN SUCCINATE [Suspect]
     Indication: MIGRAINE
     Dosage: 18MG UNKNOWN
     Dates: start: 20050502, end: 20050504
  2. SUMATRIPTAN SUCCINATE [Suspect]
     Dosage: 100MG UNKNOWN
     Dates: start: 20050510, end: 20050510
  3. VICODIN [Concomitant]
  4. AMITRIPTYLINE HCL [Concomitant]
  5. MOTRIN [Concomitant]
  6. ALEVE [Concomitant]
  7. LABETALOL HCL [Concomitant]
     Indication: HYPERTENSION
  8. NIFEDIPINE [Concomitant]
  9. METHYLDOPA [Concomitant]

REACTIONS (4)
  - CARNITINE PALMITOYLTRANSFERASE DEFICIENCY [None]
  - DRUG EXPOSURE DURING PREGNANCY [None]
  - PREMATURE LABOUR [None]
  - PYLORIC STENOSIS [None]
